FAERS Safety Report 14903935 (Version 1)
Quarter: 2018Q2

REPORT INFORMATION
  Report Type: Spontaneous
  Country: None (occurrence: IT)
  Receive Date: 20180516
  Receipt Date: 20180516
  Transmission Date: 20180711
  Serious: Yes (Other)
  Sender: FDA-Public Use
  Company Number: IT-LABORATOIRE HRA PHARMA-2047948

PATIENT
  Age: 32 Year
  Sex: Female

DRUGS (12)
  1. CARBOPLATIN. [Suspect]
     Active Substance: CARBOPLATIN
  2. METOPIRONE [Suspect]
     Active Substance: METYRAPONE
     Dates: start: 20130524, end: 20130720
  3. EVEROLIMUS. [Suspect]
     Active Substance: EVEROLIMUS
     Dates: start: 20130319, end: 20130624
  4. GEMCITABINE [Suspect]
     Active Substance: GEMCITABINE\GEMCITABINE HYDROCHLORIDE
  5. LANREOTIDE [Suspect]
     Active Substance: LANREOTIDE
     Dates: start: 20140626, end: 20171101
  6. GEMCITABINE [Suspect]
     Active Substance: GEMCITABINE\GEMCITABINE HYDROCHLORIDE
     Dates: start: 20140316, end: 20140316
  7. OCTREOTIDE WITH POLY(D L-LACTIDE-CO-GLYCOLIDE) [Suspect]
     Active Substance: OCTREOTIDE ACETATE
     Dates: start: 20130319, end: 20140601
  8. LENVATINIB [Suspect]
     Active Substance: LENVATINIB
  9. OMEPRAZOLE. [Suspect]
     Active Substance: OMEPRAZOLE
     Dates: start: 20130524, end: 20130524
  10. TEMOZOLOMIDE. [Suspect]
     Active Substance: TEMOZOLOMIDE
  11. CAPECITABINE. [Suspect]
     Active Substance: CAPECITABINE
     Dates: start: 20140316, end: 20140316
  12. ETOPOSIDE. [Suspect]
     Active Substance: ETOPOSIDE

REACTIONS (9)
  - Hypokalaemia [Unknown]
  - Hepatic lesion [Unknown]
  - Hyperglycaemia [Unknown]
  - Hypercorticoidism [Unknown]
  - Asthenia [Unknown]
  - Disease progression [Unknown]
  - Liver disorder [Unknown]
  - Pancreatic disorder [Unknown]
  - Acne [Unknown]
